FAERS Safety Report 8553591-3 (Version None)
Quarter: 2012Q2

REPORT INFORMATION
  Report Type: 
  Country: None (occurrence: None)
  Receive Date: 20120417
  Receipt Date: 20120119
  Transmission Date: 20120825
  Serious: Yes (Other)
  Sender: FDA-Public Use
  Company Number: 12-046

PATIENT
  Age: 62 Year
  Sex: Female
  Weight: 77.1 kg

DRUGS (2)
  1. ALEVE [Suspect]
     Indication: TEMPOROMANDIBULAR JOINT SYNDROME
     Dosage: 1DF / BID / ORAL
     Route: 048
     Dates: start: 20120106, end: 20120113
  2. NAPROXEN [Suspect]
     Indication: ARTHROPATHY

REACTIONS (1)
  - HYPERSENSITIVITY [None]
